FAERS Safety Report 4658165-2 (Version None)
Quarter: 2005Q2

REPORT INFORMATION
  Report Type: 
  Country: None (occurrence: None)
  Receive Date: 20050509
  Receipt Date: 20050426
  Transmission Date: 20051028
  Serious: Yes (Hospitalization)
  Sender: FDA-Public Use
  Company Number: 2005065725

PATIENT
  Age: 30 Year
  Sex: Female
  Weight: 97.5234 kg

DRUGS (6)
  1. BEXTRA [Suspect]
     Indication: OSTEOARTHRITIS
     Dosage: (DAILY), ORAL
     Route: 048
  2. CELEBREX [Suspect]
     Indication: OSTEOARTHRITIS
     Dosage: 400 MG (200 MG, 2 IN 1 D), ORAL
     Route: 048
     Dates: start: 19950101
  3. TOLTERODINE L-TARTRATE (TOLTERODONE L-TARTRATE) [Concomitant]
  4. BACLOFEN [Concomitant]
  5. LANSOPRAZOLE [Concomitant]
  6. HYOSCYAMINE (HYOSCYAMINE) [Concomitant]

REACTIONS (20)
  - ABDOMINAL PAIN UPPER [None]
  - BLOOD BLISTER [None]
  - CHEST DISCOMFORT [None]
  - DIVERTICULITIS [None]
  - GASTRIC HAEMORRHAGE [None]
  - GENERALISED OEDEMA [None]
  - HEPATIC ENZYME ABNORMAL [None]
  - INSOMNIA [None]
  - MALAISE [None]
  - NAUSEA [None]
  - ORAL MUCOSAL BLISTERING [None]
  - PAIN IN EXTREMITY [None]
  - PARAESTHESIA [None]
  - RASH ERYTHEMATOUS [None]
  - RASH PRURITIC [None]
  - SCAR [None]
  - SKIN DISORDER [None]
  - STOMACH DISCOMFORT [None]
  - THROAT TIGHTNESS [None]
  - VOMITING [None]
